FAERS Safety Report 8073636-7 (Version None)
Quarter: 2012Q1

REPORT INFORMATION
  Report Type: 
  Country: None (occurrence: None)
  Receive Date: 20120126
  Receipt Date: 20120120
  Transmission Date: 20120608
  Serious: Yes (Hospitalization)
  Sender: FDA-Public Use
  Company Number: US-PFIZER INC-2012017267

PATIENT
  Sex: Female
  Weight: 54.422 kg

DRUGS (2)
  1. LYRICA [Suspect]
     Indication: FIBROMYALGIA
     Dosage: TWO TIMES A DAY
     Route: 048
     Dates: start: 20090101, end: 20100601
  2. MELOXICAM [Concomitant]
     Dosage: UNK

REACTIONS (3)
  - BACK DISORDER [None]
  - OEDEMA PERIPHERAL [None]
  - PAIN IN EXTREMITY [None]
